FAERS Safety Report 9363206 (Version 2)
Quarter: 2013Q3

REPORT INFORMATION
  Report Type: Spontaneous
  Country: US (occurrence: US)
  Receive Date: 20130624
  Receipt Date: 20130711
  Transmission Date: 20140515
  Serious: Yes (Hospitalization, Other)
  Sender: FDA-Public Use
  Company Number: US-BIOGENIDEC-2013BI054103

PATIENT
  Age: 40 Year
  Sex: Female

DRUGS (2)
  1. TYSABRI [Suspect]
     Indication: MULTIPLE SCLEROSIS
     Route: 042
     Dates: start: 20071023
  2. KEPPRA [Concomitant]
     Indication: CONVULSION

REACTIONS (4)
  - Migraine [Unknown]
  - Brain neoplasm [Unknown]
  - Central nervous system lesion [Unknown]
  - Diaphragmatic disorder [Not Recovered/Not Resolved]
